FAERS Safety Report 9321488 (Version 1)
Quarter: 2013Q2

REPORT INFORMATION
  Report Type: Spontaneous
  Country: US (occurrence: None)
  Receive Date: 20130528
  Receipt Date: 20130528
  Transmission Date: 20140414
  Serious: Yes (Hospitalization)
  Sender: FDA-Public Use
  Company Number: US-1198289

PATIENT
  Age: 70 Year
  Sex: Male

DRUGS (1)
  1. FLUORESCITE [Suspect]
     Indication: ANGIOGRAM RETINA
     Route: 040
     Dates: start: 20130509

REACTIONS (3)
  - Swelling face [None]
  - Dermatitis bullous [None]
  - Pyrexia [None]
